FAERS Safety Report 23548713 (Version 1)
Quarter: 2024Q1

REPORT INFORMATION
  Report Type: Spontaneous
  Country: US (occurrence: None)
  Receive Date: 20240219
  Receipt Date: 20240219
  Transmission Date: 20240410
  Serious: Yes (Life-Threatening, Hospitalization)
  Sender: FDA-Public Use
  Company Number: None

PATIENT
  Age: 71 Year
  Sex: Male
  Weight: 102 kg

DRUGS (1)
  1. PANZYGA [Suspect]
     Active Substance: HUMAN IMMUNOGLOBULIN G
     Dosage: FREQUENCY : MONTHLY;?
     Route: 042

REACTIONS (3)
  - Cerebrovascular accident [None]
  - Blood pressure increased [None]
  - Incorrect drug administration rate [None]

NARRATIVE: CASE EVENT DATE: 20240206
